FAERS Safety Report 5923215-X (Version None)
Quarter: 2008Q4

REPORT INFORMATION
  Report Type: 
  Country: None (occurrence: None)
  Receive Date: 20081015
  Receipt Date: 20081008
  Transmission Date: 20090506
  Serious: Yes (Hospitalization)
  Sender: FDA-Public Use
  Company Number: 2008BI001496

PATIENT
  Age: 35 Year
  Sex: Female
  Weight: 70.3075 kg

DRUGS (2)
  1. TYSABRI [Suspect]
     Indication: MULTIPLE SCLEROSIS
     Dosage: 300 MG; QM; IV
     Route: 042
     Dates: start: 20071025, end: 20080301
  2. AVONEX [Concomitant]

REACTIONS (11)
  - APHTHOUS STOMATITIS [None]
  - BRONCHITIS [None]
  - CYSTITIS [None]
  - GASTROENTERITIS [None]
  - OROPHARYNGEAL PAIN [None]
  - PHARYNGITIS STREPTOCOCCAL [None]
  - POLYNEUROPATHY [None]
  - PRURITUS [None]
  - SINUSITIS [None]
  - URINARY TRACT INFECTION [None]
  - VERTIGO [None]
